FAERS Safety Report 13592737 (Version 2)
Quarter: 2017Q2

REPORT INFORMATION
  Report Type: Spontaneous
  Country: US (occurrence: US)
  Receive Date: 20170530
  Receipt Date: 20170601
  Transmission Date: 20170830
  Serious: No
  Sender: FDA-Public Use
  Company Number: US-GILEAD-2017-0274823

PATIENT
  Age: 63 Year
  Sex: Male

DRUGS (2)
  1. PREZCOBIX [Concomitant]
     Active Substance: COBICISTAT\DARUNAVIR ETHANOLATE
  2. DESCOVY [Suspect]
     Active Substance: EMTRICITABINE\TENOFOVIR ALAFENAMIDE FUMARATE
     Indication: HIV INFECTION
     Dosage: 225 MG, UNK
     Route: 048
     Dates: start: 20170505

REACTIONS (5)
  - Pain in extremity [Not Recovered/Not Resolved]
  - Appetite disorder [Unknown]
  - Sluggishness [Unknown]
  - Arthritis [Unknown]
  - Weight decreased [Unknown]
